FAERS Safety Report 5786648-0 (Version None)
Quarter: 2008Q2

REPORT INFORMATION
  Report Type: 
  Country: None (occurrence: None)
  Receive Date: 20080624
  Receipt Date: 20080612
  Transmission Date: 20081010
  Serious: Yes (Other)
  Sender: FDA-Public Use
  Company Number: US-PFIZER INC-2008051850

PATIENT
  Sex: Male
  Weight: 104.09 kg

DRUGS (8)
  1. CHANTIX [Suspect]
     Indication: SMOKING CESSATION THERAPY
     Dates: start: 20080201, end: 20080301
  2. CHLORPROMAZINE HYDROCHLORIDE [Concomitant]
  3. FUROSEMIDE [Concomitant]
  4. METFORMIN HCL [Concomitant]
  5. DOXEPIN HCL [Concomitant]
  6. ASPIRIN [Concomitant]
  7. TOLTERODINE TARTRATE [Concomitant]
  8. OXYGEN [Concomitant]

REACTIONS (2)
  - AGGRESSION [None]
  - DEPRESSION [None]
